FAERS Safety Report 9954750 (Version 1)
Quarter: 2014Q1

REPORT INFORMATION
  Report Type: Report from Study
  Country: US (occurrence: US)
  Receive Date: 20140304
  Receipt Date: 20140304
  Transmission Date: 20141002
  Serious: No
  Sender: FDA-Public Use
  Company Number: US-ABBVIE-13P-163-1083202-00

PATIENT
  Age: 57 Year
  Sex: Female

DRUGS (15)
  1. HUMIRA [Suspect]
     Indication: PSORIASIS
     Dates: start: 20120927, end: 20120927
  2. HUMIRA [Suspect]
     Dates: start: 20121006, end: 20121006
  3. HUMIRA [Suspect]
  4. PROBIOTIC [Concomitant]
     Indication: PRODUCT USED FOR UNKNOWN INDICATION
     Dosage: DAILY
  5. LASIX [Concomitant]
     Indication: FLUID RETENTION
  6. POTASSIUM [Concomitant]
     Indication: PRODUCT USED FOR UNKNOWN INDICATION
  7. CELEXA [Concomitant]
     Indication: DEPRESSION
  8. OMEPRAZOLE [Concomitant]
     Indication: GASTROOESOPHAGEAL REFLUX DISEASE
  9. NORVASC [Concomitant]
     Indication: HYPERTENSION
  10. SYMBICORT [Concomitant]
     Indication: ASTHMA
     Dosage: 160/4.5 MG INHALER
     Route: 055
  11. SYMBICORT [Concomitant]
     Indication: CHRONIC OBSTRUCTIVE PULMONARY DISEASE
  12. VIT D3 [Concomitant]
     Indication: PRODUCT USED FOR UNKNOWN INDICATION
  13. LYSINE [Concomitant]
     Indication: PRODUCT USED FOR UNKNOWN INDICATION
  14. BAYER ASPIRIN [Concomitant]
     Indication: PRODUCT USED FOR UNKNOWN INDICATION
  15. CLARITIN [Concomitant]
     Indication: HYPERSENSITIVITY

REACTIONS (6)
  - Weight decreased [Unknown]
  - Drug ineffective [Not Recovered/Not Resolved]
  - Psoriasis [Not Recovered/Not Resolved]
  - Influenza [Unknown]
  - Urinary tract infection [Recovered/Resolved]
  - Urinary tract infection [Unknown]
